FAERS Safety Report 5759640-X (Version None)
Quarter: 2008Q2

REPORT INFORMATION
  Report Type: 
  Country: None (occurrence: None)
  Receive Date: 20080605
  Receipt Date: 20080527
  Transmission Date: 20081010
  Serious: Yes (Hospitalization)
  Sender: FDA-Public Use
  Company Number: GB-TEVA-172075ISR

PATIENT
  Age: 82 Year
  Sex: Male

DRUGS (2)
  1. MIRTAZAPINE [Suspect]
     Indication: DEPRESSION
     Route: 048
     Dates: start: 20080403, end: 20080418
  2. INDAPAMIDE [Suspect]
     Indication: HYPERTENSION
     Route: 048

REACTIONS (5)
  - AGITATION [None]
  - CONFUSIONAL STATE [None]
  - EPILEPSY [None]
  - HYPOKALAEMIA [None]
  - HYPONATRAEMIA [None]
